FAERS Safety Report 7621502-0 (Version None)
Quarter: 2011Q3

REPORT INFORMATION
  Report Type: 
  Country: None (occurrence: None)
  Receive Date: 20110719
  Receipt Date: 20110708
  Transmission Date: 20111222
  Serious: Yes (Death, Other)
  Sender: FDA-Public Use
  Company Number: JP-AMGEN-JPNCT2011036465

PATIENT
  Age: 75 Year
  Sex: Female
  Weight: 55 kg

DRUGS (12)
  1. FLUOROURACIL [Suspect]
     Route: 041
     Dates: start: 20101021, end: 20101023
  2. OXALIPLATIN [Suspect]
     Indication: COLORECTAL CANCER
     Route: 041
     Dates: start: 20101021, end: 20101023
  3. LEUCOVORIN CALCIUM [Suspect]
     Indication: COLORECTAL CANCER
     Route: 041
     Dates: start: 20101021, end: 20101023
  4. PANITUMUMAB [Suspect]
     Indication: COLORECTAL CANCER
     Dosage: 6 MG/KG, Q2WK
     Route: 041
     Dates: start: 20101021, end: 20101021
  5. CORTICOSTEROIDS [Concomitant]
     Indication: PROPHYLAXIS
     Dosage: UNK
     Route: 065
  6. FLUOROURACIL [Suspect]
     Indication: COLORECTAL CANCER
     Route: 040
     Dates: start: 20101021, end: 20101023
  7. EMEND [Concomitant]
     Dosage: UNK
     Route: 048
  8. BETAMETHASONE [Concomitant]
     Dosage: UNK
     Route: 048
  9. ANTIHISTAMINES [Concomitant]
     Indication: PROPHYLAXIS
     Dosage: UNK
     Route: 065
  10. POLARAMINE [Concomitant]
     Route: 042
  11. ALOXI [Concomitant]
     Route: 042
  12. DECADRON [Concomitant]
     Route: 042

REACTIONS (2)
  - COLORECTAL CANCER [None]
  - DECREASED APPETITE [None]
